FAERS Safety Report 11319820 (Version 2)
Quarter: 2015Q3

REPORT INFORMATION
  Report Type: Spontaneous
  Country: CN (occurrence: CN)
  Receive Date: 20150729
  Receipt Date: 20150804
  Transmission Date: 20151125
  Serious: Yes (Death)
  Sender: FDA-Public Use
  Company Number: CN-BAYER-2015-383288

PATIENT
  Age: 52 Year
  Sex: Male

DRUGS (1)
  1. AVELOX [Suspect]
     Active Substance: MOXIFLOXACIN HYDROCHLORIDE
     Indication: PROTEIN URINE PRESENT
     Dosage: UNK
     Route: 048

REACTIONS (6)
  - Decreased appetite [None]
  - Affect lability [None]
  - Completed suicide [Fatal]
  - Off label use [None]
  - Fatigue [None]
  - Somnolence [None]
